FAERS Safety Report 8499045-4 (Version None)
Quarter: 2012Q3

REPORT INFORMATION
  Report Type: 
  Country: None (occurrence: None)
  Receive Date: 20120710
  Receipt Date: 20120629
  Transmission Date: 20120928
  Serious: Yes (Hospitalization)
  Sender: FDA-Public Use
  Company Number: SK-009507513-1206USA04452

PATIENT

DRUGS (4)
  1. KETOTIFEN FUMARATE [Concomitant]
     Dosage: UNK UNK, QD
  2. DESLORATADINE [Concomitant]
     Dosage: 5 MG, QD
  3. SINGULAIR [Suspect]
     Dosage: 10 MG, UNK
     Route: 048
     Dates: start: 20120127, end: 20120501
  4. FLUTICASONE PROPIONATE [Concomitant]
     Dosage: 250 A?G, BID

REACTIONS (5)
  - AUTONOMIC NERVOUS SYSTEM IMBALANCE [None]
  - ASTHENIA [None]
  - NAUSEA [None]
  - VESTIBULAR DISORDER [None]
  - ABDOMINAL DISCOMFORT [None]
